FAERS Safety Report 4407448-X (Version None)
Quarter: 2004Q3

REPORT INFORMATION
  Report Type: 
  Country: None (occurrence: None)
  Receive Date: 20040721
  Receipt Date: 20040713
  Transmission Date: 20050211
  Serious: Yes (Other)
  Sender: FDA-Public Use
  Company Number: 2004221416US

PATIENT
  Age: 47 Year
  Sex: Male
  Weight: 84.8 kg

DRUGS (6)
  1. XANAX [Suspect]
     Indication: ANXIETY
     Dosage: 2 MG, ORAL
     Route: 048
     Dates: start: 19881101, end: 20040624
  2. VALIUM [Concomitant]
  3. TENORMIN [Concomitant]
  4. ELAVIL [Concomitant]
  5. SEROQUEL [Concomitant]
  6. LORCET-HD [Concomitant]

REACTIONS (8)
  - ABASIA [None]
  - APHASIA [None]
  - DRUG INEFFECTIVE [None]
  - INSOMNIA [None]
  - INTENTIONAL OVERDOSE [None]
  - MEDICATION ERROR [None]
  - VICTIM OF CRIME [None]
  - WEIGHT DECREASED [None]
